FAERS Safety Report 13782815 (Version 1)
Quarter: 2017Q3

REPORT INFORMATION
  Report Type: Spontaneous
  Country: FR (occurrence: FR)
  Receive Date: 20170724
  Receipt Date: 20170724
  Transmission Date: 20171127
  Serious: Yes (Other)
  Sender: FDA-Public Use
  Company Number: FR-LPDUSPRD-20171037

PATIENT
  Age: 41 Year
  Sex: Female

DRUGS (1)
  1. FERINJECT [Suspect]
     Active Substance: FERRIC CARBOXYMALTOSE
     Dosage: 1 GRAM /RINGER LACTATE
     Route: 042
     Dates: start: 201606

REACTIONS (3)
  - Infusion site discolouration [Unknown]
  - Infusion site extravasation [Unknown]
  - Product preparation error [Unknown]

NARRATIVE: CASE EVENT DATE: 201606
